FAERS Safety Report 8900837 (Version 1)
Quarter: 2012Q4

REPORT INFORMATION
  Report Type: 
  Country: GB (occurrence: GB)
  Receive Date: 20121109
  Receipt Date: 20121109
  Transmission Date: 20130627
  Serious: Yes (Other)
  Sender: FDA-Public Use
  Company Number: GB-EISAI INC-E2090-02393-SPO-GB

PATIENT
  Age: 23 Year
  Sex: Male
  Weight: 120.6 kg

DRUGS (5)
  1. ZONISAMIDE [Suspect]
     Indication: EPILEPSY PETIT MAL
     Route: 048
     Dates: end: 20121019
  2. CLONAZEPAM [Concomitant]
  3. LACOSAMIDE [Concomitant]
  4. LAMOTRIGINE [Concomitant]
  5. PHENYTOIN [Concomitant]

REACTIONS (2)
  - Renal failure acute [Recovering/Resolving]
  - Renal impairment [Recovering/Resolving]
